FAERS Safety Report 8773491 (Version 2)
Quarter: 2012Q4

REPORT INFORMATION
  Report Type: 
  Country: US (occurrence: US)
  Receive Date: 20120907
  Receipt Date: 20121109
  Transmission Date: 20130627
  Serious: Yes (Other)
  Sender: FDA-Public Use
  Company Number: US-GLAXOSMITHKLINE-A0991817A

PATIENT
  Age: 61 Year
  Sex: Male
  Weight: 86.4 kg

DRUGS (2)
  1. ADVAIR [Suspect]
     Indication: ASTHMA
     Route: 055
     Dates: start: 2005
  2. SINGULAIR [Concomitant]
     Indication: ASTHMA
     Route: 048
     Dates: start: 2010

REACTIONS (5)
  - Oesophageal candidiasis [Recovered/Resolved]
  - Gastrooesophageal reflux disease [Unknown]
  - Gastric disorder [Unknown]
  - Gastric polyps [Unknown]
  - Colon adenoma [Unknown]
